FAERS Safety Report 17203433 (Version 1)
Quarter: 2019Q4

REPORT INFORMATION
  Report Type: Spontaneous
  Country: US (occurrence: US)
  Receive Date: 20191226
  Receipt Date: 20191226
  Transmission Date: 20200122
  Serious: No
  Sender: FDA-Public Use
  Company Number: US-TEVA-2019-US-1159267

PATIENT
  Age: 73 Year
  Sex: Female
  Weight: 97.73 kg

DRUGS (10)
  1. IBUPROFEN. [Concomitant]
     Active Substance: IBUPROFEN
     Dosage: AS NEEDED
  2. OMEPRAZOLE. [Concomitant]
     Active Substance: OMEPRAZOLE
     Dosage: AS NEEDED
  3. CEPHALEXIN. [Concomitant]
     Active Substance: CEPHALEXIN
  4. BACTRIM DS [Concomitant]
     Active Substance: SULFAMETHOXAZOLE\TRIMETHOPRIM
     Dosage: 800-160 TABLETS
  5. QVAR REDIHALER [Suspect]
     Active Substance: BECLOMETHASONE DIPROPIONATE
     Indication: PULMONARY FUNCTION TEST
  6. NAPROXEN. [Concomitant]
     Active Substance: NAPROXEN
     Dosage: AS NEEDED
  7. ARNICA MONTANA. [Concomitant]
     Active Substance: HOMEOPATHICS
  8. QVAR REDIHALER [Suspect]
     Active Substance: BECLOMETHASONE DIPROPIONATE
     Indication: LUNG DISORDER
     Dosage: 1 PUFF TWICE DAILY
     Dates: start: 20191209
  9. LEVOTHYROXINE. [Concomitant]
     Active Substance: LEVOTHYROXINE
  10. CARVEDILOL. [Concomitant]
     Active Substance: CARVEDILOL

REACTIONS (9)
  - Nasopharyngitis [Unknown]
  - Pain [Unknown]
  - Drug hypersensitivity [Unknown]
  - Fatigue [Unknown]
  - Productive cough [Unknown]
  - Cough [Unknown]
  - Product prescribing error [Unknown]
  - Nasal congestion [Unknown]
  - Product use in unapproved indication [Unknown]

NARRATIVE: CASE EVENT DATE: 201912
